FAERS Safety Report 25728730 (Version 1)
Quarter: 2025Q3

REPORT INFORMATION
  Report Type: Spontaneous
  Country: CA (occurrence: CA)
  Receive Date: 20250826
  Receipt Date: 20250826
  Transmission Date: 20251021
  Serious: Yes (Life-Threatening, Other)
  Sender: PURDUE
  Company Number: CA-PURDUE-USA-2025-0319996

PATIENT
  Age: 88 Year
  Sex: Male

DRUGS (1)
  1. HYDROMORPHONE HYDROCHLORIDE [Suspect]
     Active Substance: HYDROMORPHONE HYDROCHLORIDE
     Indication: Product used for unknown indication
     Route: 065

REACTIONS (6)
  - Fluid replacement [Recovered/Resolved]
  - Hypopnoea [Recovered/Resolved]
  - Hypotension [Recovered/Resolved]
  - Irregular breathing [Recovered/Resolved]
  - Oxygen therapy [Recovered/Resolved]
  - Unresponsive to stimuli [Recovered/Resolved]
